FAERS Safety Report 4584344-9 (Version None)
Quarter: 2005Q1

REPORT INFORMATION
  Report Type: 
  Country: None (occurrence: None)
  Receive Date: 20050125
  Receipt Date: 20041025
  Transmission Date: 20050727
  Serious: No
  Sender: FDA-Public Use
  Company Number: USA041082109

PATIENT
  Age: 81 Year
  Sex: Female
  Weight: 44 kg

DRUGS (1)
  1. FORTEO [Suspect]
     Indication: OSTEOPOROSIS
     Dosage: 20 UG/L DAY
     Dates: start: 20040201

REACTIONS (3)
  - JOINT DISLOCATION [None]
  - JOINT SWELLING [None]
  - PAIN IN EXTREMITY [None]
